FAERS Safety Report 15336482 (Version 1)
Quarter: 2018Q4

REPORT INFORMATION
  Report Type: Spontaneous
  Country: FR (occurrence: FR)
  Receive Date: 20180830
  Receipt Date: 20180830
  Transmission Date: 20190204
  Serious: Yes (Life-Threatening)
  Sender: FDA-Public Use
  Company Number: PHHY2018FR084166

PATIENT
  Age: 31 Year
  Sex: Female
  Weight: 61 kg

DRUGS (15)
  1. CEFUROXIME. [Suspect]
     Active Substance: CEFUROXIME
     Indication: ANTIBIOTIC PROPHYLAXIS
     Dosage: 1.5 G, 1 TOTAL
     Route: 041
     Dates: start: 20180710, end: 20180710
  2. CLOTTAFACT [Suspect]
     Active Substance: FIBRINOGEN HUMAN
     Indication: PERIPARTUM HAEMORRHAGE
     Dosage: 3 G, 1 TOTAL
     Route: 041
     Dates: start: 20180710, end: 20180710
  3. SYNTOCINON [Suspect]
     Active Substance: OXYTOCIN
     Indication: CAESAREAN SECTION
     Dosage: UNK
     Route: 041
  4. NALADOR [Suspect]
     Active Substance: SULPROSTONE
     Route: 041
     Dates: start: 20180710, end: 20180710
  5. PROPOFOL. [Suspect]
     Active Substance: PROPOFOL
     Indication: ANAESTHESIA
     Dosage: 120 MG, UNK
     Route: 041
     Dates: start: 20180710, end: 20180710
  6. CELOCURINE (SUXAMETHONIUM IODIDE) [Suspect]
     Active Substance: SUCCINYLCHOLINE IODIDE
     Indication: ANAESTHESIA
     Dosage: 60 MG, 1 TOTAL
     Route: 041
     Dates: start: 20180710, end: 20180710
  7. NORADRENALINE [Suspect]
     Active Substance: NOREPINEPHRINE
     Route: 041
     Dates: start: 20180710, end: 20180710
  8. PHENYLEPHRINE [Suspect]
     Active Substance: PHENYLEPHRINE\PHENYLEPHRINE HYDROCHLORIDE
     Indication: HYPOTENSION
     Dosage: 400 UG, 1 TOTAL
     Route: 041
     Dates: start: 20180710, end: 20180710
  9. MORPHINE [Suspect]
     Active Substance: MORPHINE
     Indication: SPINAL ANAESTHESIA
     Dosage: 100 UG, 1 TOTAL
     Route: 037
     Dates: start: 20180710, end: 20180710
  10. NORADRENALINE [Suspect]
     Active Substance: NOREPINEPHRINE
     Indication: HAEMODYNAMIC INSTABILITY
     Dosage: 1 G/KG, 1 MINUTE
     Route: 041
     Dates: start: 20180710, end: 20180710
  11. EXACYL [Suspect]
     Active Substance: TRANEXAMIC ACID
     Indication: PERIPARTUM HAEMORRHAGE
     Dosage: 1 G, TOTAL
     Route: 041
     Dates: start: 20180710, end: 20180710
  12. ZOPHREN [Suspect]
     Active Substance: ONDANSETRON
     Indication: PROPHYLAXIS OF NAUSEA AND VOMITING
     Dosage: 4 MG, 1 TOTAL
     Route: 041
     Dates: start: 20180710, end: 20180710
  13. SUFENTANIL [Suspect]
     Active Substance: SUFENTANIL
     Indication: SPINAL ANAESTHESIA
     Dosage: 35 UG, 1 TOTAL
     Route: 037
     Dates: start: 20180710, end: 20180710
  14. BUPIVACAINE. [Suspect]
     Active Substance: BUPIVACAINE
     Indication: SPINAL ANAESTHESIA
     Dosage: 7 MG, 1 TOTAL
     Route: 037
     Dates: start: 20180710, end: 20180710
  15. NALADOR [Suspect]
     Active Substance: SULPROSTONE
     Indication: PERIPARTUM HAEMORRHAGE
     Dosage: 1 ?G/L, 1 TOTAL
     Route: 041
     Dates: start: 20180710, end: 20180710

REACTIONS (1)
  - Cardio-respiratory arrest [Recovered/Resolved]

NARRATIVE: CASE EVENT DATE: 20180710
